FAERS Safety Report 6558690-3 (Version None)
Quarter: 2010Q1

REPORT INFORMATION
  Report Type: 
  Country: None (occurrence: None)
  Receive Date: 20100129
  Receipt Date: 20100118
  Transmission Date: 20100710
  Serious: Yes (Hospitalization)
  Sender: FDA-Public Use
  Company Number: SE-PFIZER INC-2009301067

PATIENT
  Sex: Male
  Weight: 75 kg

DRUGS (6)
  1. SUTENT [Suspect]
     Indication: METASTATIC RENAL CELL CARCINOMA
     Dosage: 50 MG, 1X/DAY
     Route: 048
     Dates: start: 20091012, end: 20091108
  2. OMEPRAZOL [Concomitant]
     Dosage: 20 MG, 1X/DAY
  3. TROMBYL [Concomitant]
     Dosage: 75 MG, 1X/DAY
  4. METOPROLOL [Concomitant]
     Dosage: 100 MG, 1X/DAY
  5. ENALAPRIL [Concomitant]
     Dosage: 15 MG, 1X/DAY
  6. LIPITOR [Concomitant]
     Dosage: 40 MG, 1X/DAY

REACTIONS (2)
  - LEFT VENTRICULAR FAILURE [None]
  - MYOCARDIAL INFARCTION [None]
